FAERS Safety Report 9642353 (Version 1)
Quarter: 2013Q4

REPORT INFORMATION
  Report Type: Spontaneous
  Country: US (occurrence: US)
  Receive Date: 20131024
  Receipt Date: 20131024
  Transmission Date: 20140711
  Serious: Yes (Other)
  Sender: FDA-Public Use
  Company Number: US-BIOGENIDEC-2013BI100639

PATIENT
  Sex: Female

DRUGS (1)
  1. TECFIDERA [Suspect]
     Indication: PRODUCT USED FOR UNKNOWN INDICATION

REACTIONS (8)
  - Convulsion [Unknown]
  - Abdominal pain upper [Recovered/Resolved]
  - Vomiting [Unknown]
  - Pain [Unknown]
  - Loss of consciousness [Unknown]
  - Nausea [Unknown]
  - Photopsia [Unknown]
  - Epigastric discomfort [Unknown]
